FAERS Safety Report 23908059 (Version 2)
Quarter: 2024Q2

REPORT INFORMATION
  Report Type: Spontaneous
  Country: US (occurrence: US)
  Receive Date: 20240528
  Receipt Date: 20240603
  Transmission Date: 20240715
  Serious: Yes (Hospitalization, Other)
  Sender: FDA-Public Use
  Company Number: US-CIPLA LTD.-2024US05048

PATIENT

DRUGS (1)
  1. AMLODIPINE [Suspect]
     Active Substance: AMLODIPINE BESYLATE
     Dosage: 200 MILLIGRAM, UNK
     Route: 048

REACTIONS (3)
  - Circulatory collapse [Recovering/Resolving]
  - Intentional overdose [Recovering/Resolving]
  - Hypoinsulinaemia [Recovering/Resolving]
